FAERS Safety Report 13119680 (Version 1)
Quarter: 2017Q1

REPORT INFORMATION
  Report Type: Spontaneous
  Country: DE (occurrence: DE)
  Receive Date: 20170117
  Receipt Date: 20170117
  Transmission Date: 20170428
  Serious: Yes (Other)
  Sender: FDA-Public Use
  Company Number: DE-B.I. PHARMACEUTICALS,INC./RIDGEFIELD-2016-BI-086627

PATIENT
  Age: 72 Year
  Sex: Male
  Weight: 89 kg

DRUGS (7)
  1. IBUPROFEN. [Suspect]
     Active Substance: IBUPROFEN
     Indication: PAIN
     Dosage: FORM STRENGTH: 400
     Route: 065
  2. PRADAXA [Suspect]
     Active Substance: DABIGATRAN ETEXILATE MESYLATE
     Indication: ATRIAL FIBRILLATION
     Route: 065
     Dates: start: 201612, end: 201612
  3. NOVALGIN [Concomitant]
     Active Substance: METAMIZOLE SODIUM
     Indication: PAIN
     Route: 065
  4. ARCOXIA [Suspect]
     Active Substance: ETORICOXIB
     Indication: PAIN
     Route: 065
  5. PRADAXA [Suspect]
     Active Substance: DABIGATRAN ETEXILATE MESYLATE
     Indication: PULMONARY EMBOLISM
     Route: 065
     Dates: start: 201501, end: 201501
  6. PRADAXA [Suspect]
     Active Substance: DABIGATRAN ETEXILATE MESYLATE
     Indication: ARRHYTHMIA
     Route: 065
     Dates: start: 20161220
  7. PRADAXA [Suspect]
     Active Substance: DABIGATRAN ETEXILATE MESYLATE
     Indication: PELVIC CONGESTION

REACTIONS (6)
  - Gingival bleeding [Recovered/Resolved]
  - Rectal haemorrhage [Recovered/Resolved]
  - Skin haemorrhage [Recovered/Resolved]
  - Epistaxis [Recovered/Resolved]
  - Thrombin time prolonged [Recovered/Resolved]
  - Activated partial thromboplastin time shortened [Recovered/Resolved]

NARRATIVE: CASE EVENT DATE: 201501
